FAERS Safety Report 25998213 (Version 1)
Quarter: 2025Q4

REPORT INFORMATION
  Report Type: Spontaneous
  Country: US (occurrence: US)
  Receive Date: 20251105
  Receipt Date: 20251105
  Transmission Date: 20260119
  Serious: No
  Sender: JOHNSON AND JOHNSON
  Company Number: US-JNJFOC-20251143235

PATIENT
  Age: 69 Year
  Sex: Male

DRUGS (3)
  1. YONDELIS [Suspect]
     Active Substance: TRABECTEDIN
     Indication: Leiomyosarcoma metastatic
     Dates: start: 20251103
  2. Doxyrubicin [Concomitant]
     Indication: Leiomyosarcoma metastatic
  3. GRISEOFULVIN [Concomitant]
     Active Substance: GRISEOFULVIN
     Indication: Tinea cruris

REACTIONS (1)
  - Intentional product use issue [Unknown]

NARRATIVE: CASE EVENT DATE: 20251103
